FAERS Safety Report 21190617 (Version 1)
Quarter: 2022Q3

REPORT INFORMATION
  Report Type: Spontaneous
  Country: GB (occurrence: GB)
  Receive Date: 20220809
  Receipt Date: 20220809
  Transmission Date: 20221027
  Serious: Yes (Other)
  Sender: FDA-Public Use
  Company Number: GB-MYLANLABS-2022M1084238

PATIENT
  Age: 48 Year
  Sex: Female

DRUGS (1)
  1. FLUOROURACIL [Suspect]
     Active Substance: FLUOROURACIL
     Indication: Actinic keratosis
     Dosage: BID,APPLIED USING HER UNGLOVED INDEX FINGER; TOTAL 2 COURSES OF 3 WEEKS EACH
     Route: 061

REACTIONS (1)
  - Dermatoglyphic anomaly [Not Recovered/Not Resolved]
